FAERS Safety Report 15540068 (Version 1)
Quarter: 2018Q4

REPORT INFORMATION
  Report Type: Spontaneous
  Country: GB (occurrence: GB)
  Receive Date: 20181023
  Receipt Date: 20181023
  Transmission Date: 20190205
  Serious: Yes (Hospitalization)
  Sender: FDA-Public Use
  Company Number: GB-BIOVITRUM-2018GB1231

PATIENT
  Sex: Female
  Weight: 25.1 kg

DRUGS (2)
  1. KINERET [Suspect]
     Active Substance: ANAKINRA
     Indication: STILL^S DISEASE
     Route: 058
     Dates: start: 20180817, end: 20180829
  2. LANSOPRAZOLE. [Concomitant]
     Active Substance: LANSOPRAZOLE

REACTIONS (2)
  - Haemophagocytic lymphohistiocytosis [Unknown]
  - Allergic hepatitis [Recovering/Resolving]

NARRATIVE: CASE EVENT DATE: 20180829
